FAERS Safety Report 8507890-1 (Version None)
Quarter: 2012Q3

REPORT INFORMATION
  Report Type: 
  Country: None (occurrence: None)
  Receive Date: 20120709
  Receipt Date: 20120709
  Transmission Date: 20120928
  Serious: No
  Sender: FDA-Public Use
  Company Number: None

PATIENT
  Age: 70 Year
  Sex: Female
  Weight: 63.5036 kg

DRUGS (1)
  1. LABETALOL HCL [Suspect]
     Indication: HYPERTENSION
     Dosage: 300MG 3 TIMES A DAY PO
     Route: 048

REACTIONS (5)
  - RAYNAUD'S PHENOMENON [None]
  - ACTIVITIES OF DAILY LIVING IMPAIRED [None]
  - ASTHENIA [None]
  - SKIN DISCOLOURATION [None]
  - HYPERHIDROSIS [None]
